FAERS Safety Report 21286810 (Version 1)
Quarter: 2022Q3

REPORT INFORMATION
  Report Type: Spontaneous
  Country: SK (occurrence: SK)
  Receive Date: 20220902
  Receipt Date: 20220902
  Transmission Date: 20221027
  Serious: Yes (Other)
  Sender: FDA-Public Use
  Company Number: SK-STADA-254425

PATIENT
  Age: 53 Year
  Sex: Male

DRUGS (4)
  1. IMATINIB [Suspect]
     Active Substance: IMATINIB
     Indication: Gastrointestinal stromal tumour
     Dosage: 400 MILLIGRAM, QD
     Route: 065
  2. IMATINIB [Suspect]
     Active Substance: IMATINIB
     Dosage: 400 MILLIGRAM, BID (0.5 DAY) (2 X 400 MG)
     Route: 065
  3. SUNITINIB [Suspect]
     Active Substance: SUNITINIB
     Indication: Gastrointestinal stromal tumour
     Dosage: UNK
     Route: 065
     Dates: start: 201511, end: 201611
  4. REGORAFENIB [Suspect]
     Active Substance: REGORAFENIB
     Indication: Gastrointestinal stromal tumour
     Dosage: UNK
     Route: 065
     Dates: start: 201701

REACTIONS (1)
  - Drug resistance [Unknown]
